FAERS Safety Report 21184770 (Version 1)
Quarter: 2022Q3

REPORT INFORMATION
  Report Type: Spontaneous
  Country: US (occurrence: None)
  Receive Date: 20220805
  Receipt Date: 20220805
  Transmission Date: 20221027
  Serious: Yes (Other)
  Sender: FDA-Public Use
  Company Number: None

PATIENT
  Age: 75 Year
  Sex: Female
  Weight: 71.55 kg

DRUGS (1)
  1. ROSUVASTATIN [Suspect]
     Active Substance: ROSUVASTATIN
     Indication: Hypercholesterolaemia
     Dosage: FREQUENCY : DAILY;?
     Route: 048
     Dates: start: 20210601, end: 20220804

REACTIONS (2)
  - Bladder hypertrophy [None]
  - Cystitis noninfective [None]

NARRATIVE: CASE EVENT DATE: 20220608
